FAERS Safety Report 9412405 (Version 1)
Quarter: 2013Q3

REPORT INFORMATION
  Report Type: Report from Study
  Country: US (occurrence: US)
  Receive Date: 20130722
  Receipt Date: 20130722
  Transmission Date: 20140515
  Serious: Yes (Hospitalization)
  Sender: FDA-Public Use
  Company Number: US-ROCHE-1246915

PATIENT
  Age: 66 Year
  Sex: Female
  Weight: 68.55 kg

DRUGS (6)
  1. XELODA [Suspect]
     Indication: BREAST CANCER METASTATIC
     Dosage: 14 DAYS ON AND 14 DAYS OFF
     Route: 048
  2. XELODA [Suspect]
     Route: 048
     Dates: start: 201211, end: 20130624
  3. XELODA [Suspect]
     Route: 048
  4. METFORMIN [Concomitant]
     Indication: TYPE 2 DIABETES MELLITUS
     Route: 048
  5. SYNTHROID [Concomitant]
     Indication: HYPOTHYROIDISM
     Route: 048
  6. ZOMETA [Concomitant]
     Indication: METASTASES TO BONE
     Route: 042

REACTIONS (4)
  - Pelvic fracture [Unknown]
  - Groin pain [Recovering/Resolving]
  - Fall [Unknown]
  - Fracture [Unknown]
